FAERS Safety Report 7331074-6 (Version None)
Quarter: 2011Q1

REPORT INFORMATION
  Report Type: 
  Country: None (occurrence: None)
  Receive Date: 20110228
  Receipt Date: 20110228
  Transmission Date: 20110831
  Serious: Yes (Other)
  Sender: FDA-Public Use
  Company Number: None

PATIENT
  Sex: Male
  Weight: 83.9154 kg

DRUGS (1)
  1. AVELOX MOXTFLOXACIN [Suspect]
     Indication: SINUSITIS
     Dosage: 400 MG ONE DAILY PO
     Route: 048
     Dates: start: 20110122, end: 20110124

REACTIONS (6)
  - NERVOUSNESS [None]
  - DIZZINESS [None]
  - SYNCOPE [None]
  - NAUSEA [None]
  - AGITATION [None]
  - VOMITING [None]
